FAERS Safety Report 5498635-0 (Version None)
Quarter: 2007Q4

REPORT INFORMATION
  Report Type: 
  Country: None (occurrence: None)
  Receive Date: 20071024
  Receipt Date: 20071024
  Transmission Date: 20080405
  Serious: No
  Sender: FDA-Public Use
  Company Number: None

PATIENT
  Sex: Female
  Weight: 51.9 kg

DRUGS (12)
  1. CYTARABINE [Suspect]
     Dosage: 70 MG
  2. DAUNORUBICIN HCL [Suspect]
     Dosage: 113 MG
  3. LEUCOVORIN CALCIUM [Suspect]
     Dosage: 15 MG
  4. METHOTREXATE [Suspect]
     Dosage: 15 MG
  5. PEG-L- ASPARAGINASE (K- H) [Suspect]
     Dosage: 3750 UNIT
  6. PREDNISONE [Suspect]
     Dosage: 1890 MG
  7. VINCRISTINE SULFATE [Suspect]
     Dosage: 6 MG
  8. LANTUS [Concomitant]
  9. NOVOLOG [Concomitant]
  10. NYSTATIN [Concomitant]
  11. PERIDEX [Concomitant]
  12. ZANTAC [Concomitant]

REACTIONS (2)
  - CARDIO-RESPIRATORY ARREST [None]
  - DEPRESSED LEVEL OF CONSCIOUSNESS [None]
